FAERS Safety Report 5422372-1 (Version None)
Quarter: 2007Q3

REPORT INFORMATION
  Report Type: 
  Country: None (occurrence: None)
  Receive Date: 20070822
  Receipt Date: 20070817
  Transmission Date: 20080115
  Serious: Yes (Hospitalization)
  Sender: FDA-Public Use
  Company Number: A0637258A

PATIENT
  Age: 17 Year
  Sex: Male
  Weight: 148.2 kg

DRUGS (3)
  1. LAMICTAL [Suspect]
     Dosage: 250MG TWICE PER DAY
     Route: 048
     Dates: start: 20030618, end: 20050921
  2. DURICEF [Concomitant]
  3. CLARITIN-D [Concomitant]

REACTIONS (24)
  - ANOREXIA [None]
  - APLASTIC ANAEMIA [None]
  - BACTERAEMIA [None]
  - COUGH [None]
  - DIZZINESS [None]
  - DYSPNOEA [None]
  - EPISTAXIS [None]
  - EPSTEIN-BARR VIRUS INFECTION [None]
  - FATIGUE [None]
  - FEBRILE NEUTROPENIA [None]
  - HAEMATOCRIT DECREASED [None]
  - HAEMOGLOBIN DECREASED [None]
  - HEADACHE [None]
  - HERPES SIMPLEX [None]
  - INCREASED TENDENCY TO BRUISE [None]
  - INJURY [None]
  - MUSCULAR WEAKNESS [None]
  - NEUTROPENIA [None]
  - PALLOR [None]
  - PETECHIAE [None]
  - PLATELET COUNT DECREASED [None]
  - RENAL FAILURE [None]
  - TEMPERATURE INTOLERANCE [None]
  - THROMBOCYTOPENIA [None]
